FAERS Safety Report 10273629 (Version 1)
Quarter: 2014Q2

REPORT INFORMATION
  Report Type: Spontaneous
  Country: US (occurrence: None)
  Receive Date: 20140630
  Receipt Date: 20140630
  Transmission Date: 20141212
  Serious: Yes (Hospitalization)
  Sender: FDA-Public Use
  Company Number: None

PATIENT
  Age: 77 Year
  Sex: Male
  Weight: 78.4 kg

DRUGS (2)
  1. AZACITIDINE [Suspect]
     Indication: ACUTE MYELOID LEUKAEMIA
     Dosage: 50MG/M2 SQ ON DAYS 1-10?C4, D1=6/2/14
     Route: 058
  2. ENTINOSTAT [Suspect]
     Indication: ACUTE MYELOID LEUKAEMIA
     Dosage: 8MG PO ON DAYS 10 AND 17?C4, D1=6/2/14
     Route: 048

REACTIONS (6)
  - Pneumonia [None]
  - Hypotension [None]
  - Flushing [None]
  - Electrolyte imbalance [None]
  - Asthenia [None]
  - Lung infection [None]
